FAERS Safety Report 15371862 (Version 3)
Quarter: 2018Q4

REPORT INFORMATION
  Report Type: Spontaneous
  Country: AT (occurrence: AT)
  Receive Date: 20180911
  Receipt Date: 20181004
  Transmission Date: 20190204
  Serious: Yes (Death, Other)
  Sender: FDA-Public Use
  Company Number: AT-ABBVIE-18K-009-2481511-00

PATIENT
  Age: 52 Year
  Sex: Female
  Weight: 63 kg

DRUGS (6)
  1. VENCLYXTO [Suspect]
     Active Substance: VENETOCLAX
     Indication: T-CELL PROLYMPHOCYTIC LEUKAEMIA
     Route: 048
     Dates: start: 20180704, end: 20180825
  2. SUCRALFAT [Concomitant]
     Active Substance: SUCRALFATE
     Indication: PROPHYLAXIS
     Route: 048
     Dates: start: 20180821
  3. VALGANCICLOVIR. [Concomitant]
     Active Substance: VALGANCICLOVIR
     Indication: CYTOMEGALOVIRUS INFECTION
     Route: 048
  4. ALLOPURINOL. [Concomitant]
     Active Substance: ALLOPURINOL
     Indication: PROPHYLAXIS
     Route: 048
     Dates: start: 20180417
  5. PANTOPRAZOL [Concomitant]
     Active Substance: PANTOPRAZOLE SODIUM
     Indication: PROPHYLAXIS
     Route: 048
     Dates: start: 20180416
  6. SEVELAMER [Concomitant]
     Active Substance: SEVELAMER
     Indication: PROPHYLAXIS
     Route: 048
     Dates: start: 20180707

REACTIONS (4)
  - Sepsis [Fatal]
  - Off label use [Unknown]
  - T-cell prolymphocytic leukaemia [Fatal]
  - Pneumonia [Fatal]

NARRATIVE: CASE EVENT DATE: 201807
